FAERS Safety Report 5589178-4 (Version None)
Quarter: 2008Q1

REPORT INFORMATION
  Report Type: 
  Country: None (occurrence: None)
  Receive Date: 20080113
  Receipt Date: 20071212
  Transmission Date: 20080703
  Serious: Yes (Hospitalization)
  Sender: FDA-Public Use
  Company Number: US-BAYER-200713376BCC

PATIENT
  Age: 39 Year
  Sex: Male
  Weight: 92 kg

DRUGS (7)
  1. ALEVE [Suspect]
     Indication: BACK PAIN
     Dosage: TOTAL DAILY DOSE: 440 MG  UNIT DOSE: 220 MG
     Route: 048
     Dates: start: 20070101, end: 20070101
  2. SINGULAIR [Suspect]
     Indication: DRUG USE FOR UNKNOWN INDICATION
     Dosage: UNIT DOSE: 10 MG
     Route: 048
  3. RHINOCORT [Concomitant]
     Route: 045
  4. ASTELIN [Concomitant]
     Route: 045
  5. FEXOFENADINE [Concomitant]
     Dosage: TOTAL DAILY DOSE: 120 MG  UNIT DOSE: 60 MG
     Route: 048
     Dates: start: 20070928
  6. ACETAMINOPHEN [Concomitant]
     Dosage: UNIT DOSE: 500 MG
     Route: 048
     Dates: start: 20070928
  7. SODIUM CHLORIDE INJ [Concomitant]
     Dates: start: 20070928, end: 20070928

REACTIONS (10)
  - ABDOMINAL PAIN UPPER [None]
  - DIZZINESS [None]
  - ERYTHEMA [None]
  - HYPERSENSITIVITY [None]
  - LIP SWELLING [None]
  - PALPITATIONS [None]
  - PRURITUS GENERALISED [None]
  - SWELLING FACE [None]
  - TREMOR [None]
  - VOMITING [None]
